FAERS Safety Report 16598502 (Version 1)
Quarter: 2019Q3

REPORT INFORMATION
  Report Type: Spontaneous
  Country: IT (occurrence: IT)
  Receive Date: 20190719
  Receipt Date: 20190719
  Transmission Date: 20191004
  Serious: Yes (Other)
  Sender: FDA-Public Use
  Company Number: IT-SA-2019SA191074

PATIENT
  Age: 87 Year
  Sex: Female
  Weight: 54 kg

DRUGS (9)
  1. BROMAZEPAM [Interacting]
     Active Substance: BROMAZEPAM
     Indication: ANXIETY
     Dosage: 14 DROP, QD
     Route: 048
     Dates: start: 20170415
  2. POTASSION [POTASSIUM CHLORIDE] [Concomitant]
     Dosage: 1 DF, UNK
     Route: 048
     Dates: start: 20160226
  3. NITRODERM [Concomitant]
     Active Substance: NITROGLYCERIN
     Dosage: 10 MG, UNK
     Route: 062
     Dates: start: 20141211
  4. SEROQUEL [Concomitant]
     Active Substance: QUETIAPINE FUMARATE
     Dosage: 25 MG, UNK
     Route: 048
     Dates: start: 20160610
  5. STILNOX [Suspect]
     Active Substance: ZOLPIDEM TARTRATE
     Indication: INSOMNIA
     Dosage: 15 MG, QD
     Route: 048
     Dates: start: 20141202
  6. LANOXIN [Concomitant]
     Active Substance: DIGOXIN
     Dosage: 0.12 MG, UNK
     Route: 048
     Dates: start: 20141202
  7. SPIRIVA [Concomitant]
     Active Substance: TIOTROPIUM BROMIDE MONOHYDRATE
     Dosage: 10 UG, UNK
     Route: 055
     Dates: start: 20150227
  8. BISOPROLOL FUMARATE. [Concomitant]
     Active Substance: BISOPROLOL FUMARATE
     Dosage: 1.25 MG, UNK
     Route: 048
     Dates: start: 20160226
  9. KANRENOL [Concomitant]
     Active Substance: CANRENOATE POTASSIUM
     Dosage: 50 MG, UNK
     Route: 048
     Dates: start: 20141226

REACTIONS (7)
  - Tongue biting [Recovered/Resolved]
  - Loss of consciousness [Recovered/Resolved]
  - Tongue haemorrhage [Recovered/Resolved]
  - Clonic convulsion [Recovered/Resolved]
  - Off label use [Recovered/Resolved]
  - Paralysis [Recovered/Resolved]
  - Drug interaction [Recovered/Resolved]

NARRATIVE: CASE EVENT DATE: 20180516
